FAERS Safety Report 19311073 (Version 1)
Quarter: 2021Q2

REPORT INFORMATION
  Report Type: Spontaneous
  Country: US (occurrence: US)
  Receive Date: 20210526
  Receipt Date: 20210526
  Transmission Date: 20210717
  Serious: Yes (Other)
  Sender: FDA-Public Use
  Company Number: US-AUROBINDO-AUR-APL-2021-021196

PATIENT
  Age: 2 Year
  Sex: Female

DRUGS (1)
  1. CLINDAMYCIN. [Suspect]
     Active Substance: CLINDAMYCIN
     Indication: MASTOIDITIS
     Dosage: UNK
     Route: 048

REACTIONS (3)
  - Mastoiditis [Unknown]
  - Facial paresis [Recovered/Resolved]
  - Drug ineffective [Unknown]
